FAERS Safety Report 12832220 (Version 1)
Quarter: 2016Q4

REPORT INFORMATION
  Report Type: Spontaneous
  Country: DE (occurrence: DE)
  Receive Date: 20161010
  Receipt Date: 20161010
  Transmission Date: 20170207
  Serious: Yes (Other)
  Sender: FDA-Public Use
  Company Number: DE-AUROBINDO-AUR-APL-2016-12605

PATIENT
  Age: 1 Day
  Sex: Male

DRUGS (1)
  1. VENLAFAXINE 75MG [Suspect]
     Active Substance: VENLAFAXINE HYDROCHLORIDE
     Indication: DEPRESSION
     Route: 064

REACTIONS (2)
  - Foetal exposure during pregnancy [Recovering/Resolving]
  - Small for dates baby [Recovering/Resolving]

NARRATIVE: CASE EVENT DATE: 20151023
